FAERS Safety Report 4736729-5 (Version None)
Quarter: 2005Q3

REPORT INFORMATION
  Report Type: 
  Country: None (occurrence: None)
  Receive Date: 20050805
  Receipt Date: 20050729
  Transmission Date: 20060218
  Serious: Yes (Hospitalization)
  Sender: FDA-Public Use
  Company Number: 27086

PATIENT
  Age: 63 Year
  Sex: Female

DRUGS (6)
  1. TAMBOCOR [Suspect]
     Indication: ATRIAL FIBRILLATION
     Dosage: SEE IMAGE
     Route: 048
     Dates: start: 20050211, end: 20050615
  2. TAMBOCOR [Suspect]
     Indication: ATRIAL FIBRILLATION
     Dosage: SEE IMAGE
     Route: 048
     Dates: start: 20050715
  3. VERELAN [Suspect]
  4. LOPRESSOR [Suspect]
  5. WARFARIN SODIUM [Concomitant]
  6. SOTALOL HCL [Suspect]

REACTIONS (16)
  - ABDOMINAL PAIN [None]
  - ATRIAL FIBRILLATION [None]
  - CARDIOMEGALY [None]
  - CHEST PAIN [None]
  - DISEASE RECURRENCE [None]
  - DRUG INEFFECTIVE [None]
  - FATIGUE [None]
  - GASTRIC DISORDER [None]
  - HEPATIC ENZYME INCREASED [None]
  - HEPATIC PAIN [None]
  - HYPOAESTHESIA [None]
  - OEDEMA PERIPHERAL [None]
  - PERICARDIAL EFFUSION [None]
  - SOMNOLENCE [None]
  - URINARY TRACT INFECTION [None]
  - VITREOUS FLOATERS [None]
